FAERS Safety Report 21328254 (Version 9)
Quarter: 2023Q4

REPORT INFORMATION
  Report Type: Report from Study
  Country: US (occurrence: US)
  Receive Date: 20220913
  Receipt Date: 20231024
  Transmission Date: 20240110
  Serious: Yes (Other)
  Sender: FDA-Public Use
  Company Number: US-ABBVIE-22K-163-4251711-00

PATIENT
  Sex: Male
  Weight: 90.718 kg

DRUGS (15)
  1. HUMIRA [Suspect]
     Active Substance: ADALIMUMAB
     Indication: Crohn^s disease
     Dosage: CITRATE FREE
     Route: 058
     Dates: start: 2020, end: 2022
  2. HUMIRA [Suspect]
     Active Substance: ADALIMUMAB
     Route: 058
     Dates: start: 20230209
  3. HUMIRA [Suspect]
     Active Substance: ADALIMUMAB
     Dosage: CITRATE FREE?FORM STRENGTH-40 MG
     Route: 058
     Dates: start: 2000
  4. HUMIRA [Suspect]
     Active Substance: ADALIMUMAB
     Dosage: CITRATE FREE?FORM STRENGTH-40 MG
     Route: 058
     Dates: start: 20061215
  5. HUMIRA [Suspect]
     Active Substance: ADALIMUMAB
     Dosage: CITRATE FREE?FORM STRENGTH-40 MG
     Route: 058
  6. MODERNA COVID-19 VACCINE [Concomitant]
     Active Substance: ELASOMERAN
     Indication: COVID-19 immunisation
     Dosage: MANUFACTURER: MODERNA
     Dates: start: 202108, end: 202108
  7. MODERNA COVID-19 VACCINE [Concomitant]
     Active Substance: ELASOMERAN
     Indication: COVID-19 immunisation
     Dosage: MANUFACTURER: MODERNA
     Dates: start: 202103, end: 202103
  8. MODERNA COVID-19 VACCINE [Concomitant]
     Active Substance: ELASOMERAN
     Indication: COVID-19 immunisation
     Dosage: MANUFACTURER: MODERNA
     Dates: start: 202102, end: 202102
  9. LISINOPRIL [Concomitant]
     Active Substance: LISINOPRIL
     Indication: Hypertension
  10. METOPROLOL [Concomitant]
     Active Substance: METOPROLOL
     Indication: Hypertension
  11. PRILOSEC [Concomitant]
     Active Substance: OMEPRAZOLE MAGNESIUM
     Indication: Crohn^s disease
  12. FERROUS SULFATE [Concomitant]
     Active Substance: FERROUS SULFATE
     Indication: Mineral supplementation
  13. PREVALITE [Concomitant]
     Active Substance: CHOLESTYRAMINE
     Indication: Abnormal faeces
  14. SOLIFENACIN [Concomitant]
     Active Substance: SOLIFENACIN
     Indication: Incontinence
  15. MIRABEGRON [Concomitant]
     Active Substance: MIRABEGRON
     Indication: Incontinence

REACTIONS (23)
  - Meniscus injury [Recovering/Resolving]
  - Drug level decreased [Unknown]
  - Articular calcification [Recovered/Resolved]
  - Arthritis [Unknown]
  - Articular calcification [Recovering/Resolving]
  - Crohn^s disease [Not Recovered/Not Resolved]
  - Dysuria [Unknown]
  - Tendon rupture [Recovering/Resolving]
  - Therapeutic response shortened [Recovered/Resolved]
  - Crohn^s disease [Recovered/Resolved]
  - Musculoskeletal stiffness [Unknown]
  - Fall [Recovered/Resolved]
  - Arthralgia [Recovering/Resolving]
  - Drug ineffective [Not Recovered/Not Resolved]
  - Blood urine present [Unknown]
  - COVID-19 [Recovered/Resolved]
  - Crohn^s disease [Recovered/Resolved]
  - Abdominal discomfort [Unknown]
  - Drug resistance [Not Recovered/Not Resolved]
  - Drug ineffective [Unknown]
  - Scar [Recovering/Resolving]
  - Calcinosis [Recovering/Resolving]
  - Calcinosis [Recovering/Resolving]

NARRATIVE: CASE EVENT DATE: 20110101
